FAERS Safety Report 14851909 (Version 2)
Quarter: 2018Q2

REPORT INFORMATION
  Report Type: Spontaneous
  Country: DE (occurrence: DE)
  Receive Date: 20180507
  Receipt Date: 20180614
  Transmission Date: 20180711
  Serious: Yes (Disabling)
  Sender: FDA-Public Use
  Company Number: DE-B.I. PHARMACEUTICALS,INC./RIDGEFIELD-2018-BI-023998

PATIENT
  Age: 78 Year
  Sex: Female
  Weight: 70 kg

DRUGS (2)
  1. KREON [Concomitant]
     Active Substance: PANCRELIPASE
     Indication: PANCREATIC DISORDER
     Route: 065
  2. PRADAXA [Suspect]
     Active Substance: DABIGATRAN ETEXILATE MESYLATE
     Indication: POST THROMBOTIC SYNDROME
     Route: 048
     Dates: start: 20180320, end: 20180323

REACTIONS (7)
  - Diarrhoea [Not Recovered/Not Resolved]
  - Mouth haemorrhage [Recovered/Resolved]
  - Back pain [Unknown]
  - Diarrhoea [Recovering/Resolving]
  - Epistaxis [Recovered/Resolved]
  - Abdominal pain upper [Unknown]
  - Burning sensation [Unknown]

NARRATIVE: CASE EVENT DATE: 20180320
